FAERS Safety Report 4468984-3 (Version None)
Quarter: 2004Q4

REPORT INFORMATION
  Report Type: 
  Country: None (occurrence: None)
  Receive Date: 20041004
  Receipt Date: 20041004
  Transmission Date: 20050328
  Serious: Yes (Other)
  Sender: FDA-Public Use
  Company Number: None

PATIENT
  Age: 87 Year
  Sex: Male
  Weight: 110.2 kg

DRUGS (12)
  1. TERAZOSIN HCL [Suspect]
  2. CYANOCOBALAMIN [Concomitant]
  3. POTASSIUM CHLORIDE [Concomitant]
  4. ALLOPURINOL [Concomitant]
  5. SIMVASTATIN [Concomitant]
  6. TIMOLOL MALEATE [Concomitant]
  7. FUROSEMIDE [Concomitant]
  8. ALBUTEROL SULFATE AND IPRATROPIUM BROMIDE [Concomitant]
  9. ROFECOXIB [Concomitant]
  10. WARFARIN NA [Concomitant]
  11. SERTRALINE HCL [Concomitant]
  12. FLUTICAS 250/ SALMETEROL INHL [Concomitant]

REACTIONS (1)
  - DIZZINESS [None]
